FAERS Safety Report 18910888 (Version 2)
Quarter: 2021Q2

REPORT INFORMATION
  Report Type: Spontaneous
  Country: IN (occurrence: IN)
  Receive Date: 20210218
  Receipt Date: 20210623
  Transmission Date: 20210717
  Serious: Yes (Other)
  Sender: FDA-Public Use
  Company Number: IN-PFIZER INC-2021122676

PATIENT
  Age: 55 Year
  Sex: Female

DRUGS (1)
  1. PALBACE [Suspect]
     Active Substance: PALBOCICLIB
     Indication: BREAST CANCER METASTATIC
     Dosage: 125 MG, 1X/DAY
     Route: 048
     Dates: start: 20201124

REACTIONS (7)
  - Breast swelling [Unknown]
  - Restlessness [Unknown]
  - Oral pain [Unknown]
  - Pyrexia [Unknown]
  - Dizziness [Unknown]
  - Fatigue [Unknown]
  - Nephrolithiasis [Unknown]
